FAERS Safety Report 7638822-6 (Version None)
Quarter: 2011Q3

REPORT INFORMATION
  Report Type: 
  Country: None (occurrence: None)
  Receive Date: 20110726
  Receipt Date: 20110726
  Transmission Date: 20111222
  Serious: Yes (Hospitalization)
  Sender: FDA-Public Use
  Company Number: None

PATIENT
  Sex: Female
  Weight: 87.27 kg

DRUGS (3)
  1. CISPLATIN [Suspect]
     Dosage: 92 MG
  2. DOXORUBICIN HYDROCHLORIDE [Suspect]
     Dosage: 83 MG
  3. TAXOL [Suspect]
     Dosage: 294 MG

REACTIONS (10)
  - PLATELET COUNT DECREASED [None]
  - DEHYDRATION [None]
  - PYREXIA [None]
  - HYPOKALAEMIA [None]
  - HAEMOGLOBIN DECREASED [None]
  - HYPOPHOSPHATAEMIA [None]
  - NAUSEA [None]
  - DECREASED APPETITE [None]
  - VOMITING [None]
  - HYPOPHAGIA [None]
